FAERS Safety Report 16118253 (Version 1)
Quarter: 2019Q1

REPORT INFORMATION
  Report Type: Spontaneous
  Country: US (occurrence: US)
  Receive Date: 20190326
  Receipt Date: 20190326
  Transmission Date: 20190418
  Serious: Yes (Death)
  Sender: FDA-Public Use
  Company Number: US-PFIZER INC-2019131746

PATIENT
  Age: 71 Year
  Sex: Male

DRUGS (1)
  1. INLYTA [Suspect]
     Active Substance: AXITINIB
     Indication: RENAL NEOPLASM
     Dosage: 5 MG, 2X/DAY
     Route: 048
     Dates: start: 201902

REACTIONS (1)
  - Death [Fatal]

NARRATIVE: CASE EVENT DATE: 20190224
